FAERS Safety Report 4598475-0 (Version None)
Quarter: 2005Q1

REPORT INFORMATION
  Report Type: 
  Country: None (occurrence: None)
  Receive Date: 20050304
  Receipt Date: 20050223
  Transmission Date: 20050727
  Serious: Yes (Other)
  Sender: FDA-Public Use
  Company Number: US-JNJFOC-20050206401

PATIENT
  Sex: Female

DRUGS (2)
  1. TOPAMAX [Suspect]
     Indication: MIGRAINE
     Route: 065
  2. TOPAMAX [Suspect]
     Indication: BIPOLAR DISORDER
     Route: 065

REACTIONS (1)
  - OPTIC NEURITIS [None]
